FAERS Safety Report 8071670-4 (Version None)
Quarter: 2012Q1

REPORT INFORMATION
  Report Type: 
  Country: None (occurrence: None)
  Receive Date: 20120125
  Receipt Date: 20120111
  Transmission Date: 20120608
  Serious: Yes (Other)
  Sender: FDA-Public Use
  Company Number: GB-WATSON-2012-00576

PATIENT
  Age: 83 Year
  Sex: Female
  Weight: 65 kg

DRUGS (12)
  1. PREDNISOLONE [Concomitant]
     Indication: CHRONIC OBSTRUCTIVE PULMONARY DISEASE
     Dosage: 5 MG, UNKNOWN
     Route: 048
     Dates: start: 20110210
  2. ASPIRIN [Concomitant]
     Indication: MYOCARDIAL ISCHAEMIA
     Dosage: 75 MG, UNKNOWN
     Route: 048
     Dates: start: 20070410
  3. SIMVASTATIN [Concomitant]
     Indication: MYOCARDIAL ISCHAEMIA
     Dosage: 40 MG, UNKNOWN
     Route: 048
     Dates: start: 20030326
  4. NOVOLOG MIX 70/30 [Concomitant]
     Indication: DIABETES MELLITUS
     Dosage: UNK
     Route: 058
     Dates: start: 20070517
  5. ADIZEM-XL [Concomitant]
     Indication: MYOCARDIAL ISCHAEMIA
     Dosage: 200 MG, UNKNOWN
     Route: 048
     Dates: start: 20070430
  6. ALENDRONIC ACID [Concomitant]
     Indication: OSTEOPOROSIS
     Dosage: 70 MG, 1/WEEK
     Route: 048
     Dates: start: 20101230
  7. VENTOLIN [Concomitant]
     Indication: CHRONIC OBSTRUCTIVE PULMONARY DISEASE
     Dosage: UNK
     Route: 045
     Dates: start: 20101003
  8. PREDNISOLONE [Concomitant]
     Indication: COLITIS ULCERATIVE
  9. SERETIDE [Concomitant]
     Indication: CHRONIC OBSTRUCTIVE PULMONARY DISEASE
     Dosage: UNK
     Route: 045
     Dates: start: 20101003
  10. RAMIPRIL [Suspect]
     Indication: PRODUCT USED FOR UNKNOWN INDICATION
     Dosage: 1.25 MG, DAILY
     Route: 048
     Dates: start: 20110923, end: 20110930
  11. CREON [Concomitant]
     Indication: DIABETES MELLITUS
     Dosage: UNK
     Route: 048
     Dates: start: 20090102
  12. SPIRIVA [Concomitant]
     Indication: CHRONIC OBSTRUCTIVE PULMONARY DISEASE
     Dosage: UNK
     Route: 045
     Dates: start: 20101003

REACTIONS (5)
  - SKIN LESION [None]
  - RASH PRURITIC [None]
  - PURPURA [None]
  - RASH ERYTHEMATOUS [None]
  - RASH MACULO-PAPULAR [None]
